FAERS Safety Report 11663880 (Version 1)
Quarter: 2015Q4

REPORT INFORMATION
  Report Type: Report from Study
  Country: DE (occurrence: DE)
  Receive Date: 20151027
  Receipt Date: 20151027
  Transmission Date: 20160304
  Serious: Yes (Hospitalization)
  Sender: FDA-Public Use
  Company Number: DE-BIOGENIDEC-2015BI142026

PATIENT
  Age: 47 Year
  Sex: Female
  Weight: 65 kg

DRUGS (2)
  1. TECFIDERA [Suspect]
     Active Substance: DIMETHYL FUMARATE
     Indication: MULTIPLE SCLEROSIS
     Route: 048
     Dates: start: 20140623
  2. L-THYROXINE [Concomitant]
     Active Substance: LEVOTHYROXINE
     Indication: THYROID FUNCTION TEST ABNORMAL
     Dates: start: 20140623

REACTIONS (4)
  - Thyroid function test abnormal [Not Recovered/Not Resolved]
  - Multiple sclerosis [Not Recovered/Not Resolved]
  - Body temperature decreased [Recovered/Resolved with Sequelae]
  - Multiple sclerosis relapse [Recovered/Resolved with Sequelae]

NARRATIVE: CASE EVENT DATE: 20140623
